FAERS Safety Report 7197501-2 (Version None)
Quarter: 2010Q4

REPORT INFORMATION
  Report Type: 
  Country: None (occurrence: None)
  Receive Date: 20101227
  Receipt Date: 20101216
  Transmission Date: 20110411
  Serious: Yes (Hospitalization)
  Sender: FDA-Public Use
  Company Number: US-ASTELLAS-2010US005167

PATIENT

DRUGS (3)
  1. PROGRAF [Suspect]
     Indication: HEART TRANSPLANT
     Dosage: UNK
     Route: 065
  2. PREDNISONE [Suspect]
     Indication: HEART TRANSPLANT
     Dosage: UNK
     Route: 048
  3. MYCOPHENOLATE MOFETIL [Suspect]
     Indication: HEART TRANSPLANT
     Dosage: UNK
     Route: 065

REACTIONS (4)
  - AORTIC RUPTURE [None]
  - CANDIDIASIS [None]
  - CHOLECYSTITIS ACUTE [None]
  - VASCULAR PSEUDOANEURYSM [None]
